FAERS Safety Report 15790107 (Version 1)
Quarter: 2019Q1

REPORT INFORMATION
  Report Type: Spontaneous
  Country: US (occurrence: US)
  Receive Date: 20190104
  Receipt Date: 20190104
  Transmission Date: 20190417
  Serious: Yes (Death, Hospitalization)
  Sender: FDA-Public Use
  Company Number: None

PATIENT
  Age: 78 Year
  Sex: Male
  Weight: 78.75 kg

DRUGS (2)
  1. AMLODIPINE BESYLATE. [Suspect]
     Active Substance: AMLODIPINE BESYLATE
     Indication: BLOOD PRESSURE MEASUREMENT
     Route: 048
     Dates: start: 20171006, end: 20180112
  2. COREG [Concomitant]
     Active Substance: CARVEDILOL

REACTIONS (4)
  - Cerebrovascular accident [None]
  - Renal failure [None]
  - Cardiac failure [None]
  - Myocardial infarction [None]

NARRATIVE: CASE EVENT DATE: 20180112
